FAERS Safety Report 21381739 (Version 1)
Quarter: 2022Q3

REPORT INFORMATION
  Report Type: Spontaneous
  Country: JP (occurrence: JP)
  Receive Date: 20220927
  Receipt Date: 20220927
  Transmission Date: 20221027
  Serious: Yes (Other)
  Sender: FDA-Public Use
  Company Number: JP-JNJFOC-20220940771

PATIENT

DRUGS (1)
  1. IMBRUVICA [Suspect]
     Active Substance: IBRUTINIB
     Indication: Product used for unknown indication
     Dosage: IBRUTINIB:140MG
     Route: 048

REACTIONS (4)
  - Graft versus host disease [Unknown]
  - Pseudomonas infection [Unknown]
  - Nocardiosis [Unknown]
  - Gastroenteritis Escherichia coli [Unknown]
